FAERS Safety Report 20498263 (Version 6)
Quarter: 2023Q4

REPORT INFORMATION
  Report Type: Other
  Country: AU (occurrence: None)
  Receive Date: 20220222
  Receipt Date: 20231030
  Transmission Date: 20240110
  Serious: Yes (Hospitalization, Other)
  Sender: FDA-Public Use
  Company Number: AU-ROCHE-2929569

PATIENT
  Age: 67 Year
  Sex: Male

DRUGS (11)
  1. OCREVUS [Suspect]
     Active Substance: OCRELIZUMAB
     Indication: Relapsing-remitting multiple sclerosis
     Dosage: JUST FINISHED 2 X 300MG INTRO DOSING
     Route: 041
     Dates: start: 20210920, end: 20211005
  2. METHYLPREDNISOLONE ACEPONATE [Concomitant]
     Active Substance: METHYLPREDNISOLONE ACEPONATE
  3. MIRABEGRON [Concomitant]
     Active Substance: MIRABEGRON
  4. CLOBAZAM [Concomitant]
     Active Substance: CLOBAZAM
  5. CLOPIDOGREL [Concomitant]
     Active Substance: CLOPIDOGREL BISULFATE
  6. ESOMEPRAZOLE [Concomitant]
     Active Substance: ESOMEPRAZOLE
  7. IRBESARTAN [Concomitant]
     Active Substance: IRBESARTAN
  8. PRAVASTATIN [Concomitant]
     Active Substance: PRAVASTATIN
  9. SUCRALFATE [Concomitant]
     Active Substance: SUCRALFATE
  10. TRIMETHOPRIM [Concomitant]
     Active Substance: TRIMETHOPRIM
  11. VENTOLIN [Concomitant]
     Active Substance: ALBUTEROL SULFATE

REACTIONS (15)
  - Rash [Not Recovered/Not Resolved]
  - Visual acuity reduced [Unknown]
  - Diplopia [Unknown]
  - Vision blurred [Not Recovered/Not Resolved]
  - Dizziness [Not Recovered/Not Resolved]
  - Gait disturbance [Not Recovered/Not Resolved]
  - Fall [Unknown]
  - Drug hypersensitivity [Unknown]
  - Malaise [Unknown]
  - Malaise [Recovered/Resolved]
  - Urinary tract infection [Not Recovered/Not Resolved]
  - Multiple sclerosis [Not Recovered/Not Resolved]
  - Multiple sclerosis [Not Recovered/Not Resolved]
  - B-lymphocyte count decreased [Not Recovered/Not Resolved]
  - Urinary tract infection [Unknown]

NARRATIVE: CASE EVENT DATE: 20211001
